FAERS Safety Report 21476650 (Version 1)
Quarter: 2022Q4

REPORT INFORMATION
  Report Type: Spontaneous
  Country: US (occurrence: None)
  Receive Date: 20221019
  Receipt Date: 20221019
  Transmission Date: 20230113
  Serious: No
  Sender: FDA-Public Use
  Company Number: US-ADAMAS Pharma-ADM202205-001413

PATIENT
  Age: 55 Year
  Sex: Female

DRUGS (11)
  1. GOCOVRI [Suspect]
     Active Substance: AMANTADINE
     Indication: Parkinson^s disease
     Route: 048
     Dates: start: 202201
  2. ARTANE [Concomitant]
     Active Substance: TRIHEXYPHENIDYL HYDROCHLORIDE
     Dosage: NOT PROVIDED
  3. BIOTIN [Concomitant]
     Active Substance: BIOTIN
     Dosage: NOT PROVIDED
  4. COENZYME Q10 [Concomitant]
     Active Substance: DIETARY SUPPLEMENT\UBIDECARENONE
     Dosage: NOT PROVIDED
  5. DITROPAN XL [Concomitant]
     Active Substance: OXYBUTYNIN CHLORIDE
     Dosage: NOT PROVIDED
  6. FISH OIL [Concomitant]
     Active Substance: FISH OIL
     Dosage: NOT PROVIDED
  7. MINERALS\VITAMINS [Concomitant]
     Active Substance: MINERALS\VITAMINS
     Dosage: NOT PROVIDED
  8. NAPROXEN [Concomitant]
     Active Substance: NAPROXEN
     Dosage: NOT PROVIDED
  9. HERBALS\TURMERIC [Concomitant]
     Active Substance: HERBALS\TURMERIC
     Dosage: NOT PROVIDED
  10. TYLENOL [Concomitant]
     Active Substance: ACETAMINOPHEN
     Dosage: NOT PROVIDED
  11. VITAMIN D3 [Concomitant]
     Active Substance: CHOLECALCIFEROL
     Dosage: NOT PROVIDED

REACTIONS (2)
  - Skin disorder [Not Recovered/Not Resolved]
  - Tanning [Not Recovered/Not Resolved]

NARRATIVE: CASE EVENT DATE: 20220411
